FAERS Safety Report 21565779 (Version 1)
Quarter: 2022Q4

REPORT INFORMATION
  Report Type: Spontaneous
  Country: US (occurrence: US)
  Receive Date: 20221108
  Receipt Date: 20221108
  Transmission Date: 20230113
  Serious: No
  Sender: FDA-Public Use
  Company Number: US-OYSTER POINT PHARMA, INC-US-OYS-22-001118

PATIENT

DRUGS (6)
  1. TYRVAYA [Suspect]
     Active Substance: VARENICLINE TARTRATE
     Indication: Dry eye
     Dosage: UNK UNK, UNK
     Route: 045
     Dates: start: 2022, end: 20221002
  2. TYRVAYA [Suspect]
     Active Substance: VARENICLINE TARTRATE
     Dosage: UNK UNK, UNK
     Route: 045
     Dates: start: 2022, end: 20221002
  3. TYRVAYA [Suspect]
     Active Substance: VARENICLINE TARTRATE
     Dosage: UNK UNK, UNK
     Route: 045
     Dates: start: 2022, end: 20221002
  4. TYRVAYA [Suspect]
     Active Substance: VARENICLINE TARTRATE
     Dosage: UNK, UNK
     Route: 045
     Dates: start: 2022, end: 20221002
  5. TYRVAYA [Suspect]
     Active Substance: VARENICLINE TARTRATE
     Dosage: UNK, UNK
     Route: 045
     Dates: start: 2022, end: 20221002
  6. TYRVAYA [Suspect]
     Active Substance: VARENICLINE TARTRATE
     Dosage: UNK, UNK
     Route: 045
     Dates: start: 2022, end: 20221002

REACTIONS (3)
  - Sneezing [Not Recovered/Not Resolved]
  - Cough [Not Recovered/Not Resolved]
  - Product delivery mechanism issue [Unknown]

NARRATIVE: CASE EVENT DATE: 20220101
